FAERS Safety Report 15949624 (Version 5)
Quarter: 2020Q1

REPORT INFORMATION
  Report Type: Spontaneous
  Country: US (occurrence: US)
  Receive Date: 20190211
  Receipt Date: 20200309
  Transmission Date: 20200409
  Serious: Yes (Other)
  Sender: FDA-Public Use
  Company Number: US-ASTRAZENECA-2019SE10414

PATIENT
  Age: 15331 Day
  Sex: Male
  Weight: 146.1 kg

DRUGS (35)
  1. GLIMEPIRIDE. [Concomitant]
     Active Substance: GLIMEPIRIDE
  2. SULFAMETHOXAZOLE [Concomitant]
     Active Substance: SULFAMETHOXAZOLE
     Indication: INFECTION
     Dates: start: 2013
  3. NAPROXEN. [Concomitant]
     Active Substance: NAPROXEN
  4. ONDANSETRON [Concomitant]
     Active Substance: ONDANSETRON
  5. AMITRIPTYLINE [Concomitant]
     Active Substance: AMITRIPTYLINE
     Indication: DEPRESSION
     Dates: start: 2013
  6. AMOXICILLIN. [Concomitant]
     Active Substance: AMOXICILLIN
  7. SIMVASTATIN. [Concomitant]
     Active Substance: SIMVASTATIN
  8. TIZANIDINE. [Concomitant]
     Active Substance: TIZANIDINE
  9. NEXIUM [Suspect]
     Active Substance: ESOMEPRAZOLE MAGNESIUM
     Indication: GASTROOESOPHAGEAL REFLUX DISEASE
     Dosage: GENERIC
     Route: 065
     Dates: start: 2013, end: 2016
  10. NEXIUM 24HR [Suspect]
     Active Substance: ESOMEPRAZOLE MAGNESIUM
     Indication: GASTROOESOPHAGEAL REFLUX DISEASE
     Route: 048
     Dates: start: 2009, end: 2016
  11. CEPHALEXIN. [Concomitant]
     Active Substance: CEPHALEXIN
  12. PROVIGIL [Concomitant]
     Active Substance: MODAFINIL
  13. LOVASTATIN. [Concomitant]
     Active Substance: LOVASTATIN
  14. METFORMIN [Concomitant]
     Active Substance: METFORMIN HYDROCHLORIDE
  15. ALPRAZOLAM. [Concomitant]
     Active Substance: ALPRAZOLAM
  16. HYDRALAZINE [Concomitant]
     Active Substance: HYDRALAZINE HYDROCHLORIDE
  17. DOXYCYCLINE. [Concomitant]
     Active Substance: DOXYCYCLINE
  18. CITALOPRAM [Concomitant]
     Active Substance: CITALOPRAM HYDROBROMIDE
  19. PROMETHAZINE [Concomitant]
     Active Substance: PROMETHAZINE HYDROCHLORIDE
  20. MAGNESIUM [Concomitant]
     Active Substance: MAGNESIUM
  21. TRAZODONE [Concomitant]
     Active Substance: TRAZODONE HYDROCHLORIDE
     Indication: DEPRESSION
     Dates: start: 2013
  22. NEXIUM [Suspect]
     Active Substance: ESOMEPRAZOLE MAGNESIUM
     Indication: GASTROOESOPHAGEAL REFLUX DISEASE
     Route: 048
     Dates: start: 20090405
  23. NEXIUM 24HR [Suspect]
     Active Substance: ESOMEPRAZOLE MAGNESIUM
     Indication: GASTROOESOPHAGEAL REFLUX DISEASE
     Route: 048
     Dates: start: 2009
  24. TIZANIDINE HCL [Concomitant]
     Active Substance: TIZANIDINE HYDROCHLORIDE
  25. AMLODIPINE BESYLATE. [Concomitant]
     Active Substance: AMLODIPINE BESYLATE
  26. METOPROLOL TARTRATE. [Concomitant]
     Active Substance: METOPROLOL TARTRATE
  27. MELOXICAM. [Concomitant]
     Active Substance: MELOXICAM
  28. NEXIUM [Suspect]
     Active Substance: ESOMEPRAZOLE MAGNESIUM
     Indication: GASTROOESOPHAGEAL REFLUX DISEASE
     Route: 048
     Dates: start: 2009, end: 2016
  29. PROTONIX [Suspect]
     Active Substance: PANTOPRAZOLE SODIUM
     Indication: GASTROOESOPHAGEAL REFLUX DISEASE
     Dosage: GENERIC
     Route: 065
     Dates: start: 2013
  30. PROTONIX [Suspect]
     Active Substance: PANTOPRAZOLE SODIUM
     Indication: GASTROOESOPHAGEAL REFLUX DISEASE
     Route: 065
     Dates: start: 20150809
  31. LISINOPRIL. [Concomitant]
     Active Substance: LISINOPRIL
  32. AMLODIPINE [Concomitant]
     Active Substance: AMLODIPINE BESYLATE
  33. HYDROXYZINE [Concomitant]
     Active Substance: HYDROXYZINE HYDROCHLORIDE
  34. AZITHROMYCIN ANHYDROUS. [Concomitant]
     Active Substance: AZITHROMYCIN ANHYDROUS
  35. CALCIUM [Concomitant]
     Active Substance: CALCIUM

REACTIONS (8)
  - Renal tubular necrosis [Not Recovered/Not Resolved]
  - Renal injury [Unknown]
  - Rebound acid hypersecretion [Unknown]
  - Chronic kidney disease [Not Recovered/Not Resolved]
  - Acute kidney injury [Not Recovered/Not Resolved]
  - Renovascular hypertension [Unknown]
  - Nephropathy [Unknown]
  - Renal failure [Unknown]

NARRATIVE: CASE EVENT DATE: 20100611
